FAERS Safety Report 6449976-1 (Version None)
Quarter: 2009Q4

REPORT INFORMATION
  Report Type: 
  Country: None (occurrence: None)
  Receive Date: 20091120
  Receipt Date: 20091120
  Transmission Date: 20100525
  Serious: Yes (Life-Threatening, Hospitalization)
  Sender: FDA-Public Use
  Company Number: None

PATIENT
  Age: 13 Year
  Sex: Female
  Weight: 56.246 kg

DRUGS (2)
  1. WELLBUTRIN SR [Suspect]
     Indication: BIPOLAR DISORDER
     Dosage: TWICE DAILY
     Dates: start: 20091111, end: 20091116
  2. WELLBUTRIN SR [Suspect]
     Indication: BIPOLAR I DISORDER
     Dosage: TWICE DAILY
     Dates: start: 20091111, end: 20091116

REACTIONS (7)
  - ABNORMAL BEHAVIOUR [None]
  - DEHYDRATION [None]
  - DYSKINESIA [None]
  - HALLUCINATION [None]
  - HYPERTENSION [None]
  - NERVOUSNESS [None]
  - SELF INJURIOUS BEHAVIOUR [None]
